FAERS Safety Report 7798383-8 (Version None)
Quarter: 2011Q4

REPORT INFORMATION
  Report Type: 
  Country: None (occurrence: None)
  Receive Date: 20111005
  Receipt Date: 20110928
  Transmission Date: 20120403
  Serious: Yes (Hospitalization, Other)
  Sender: FDA-Public Use
  Company Number: US-PFIZER INC-2011232229

PATIENT
  Sex: Female

DRUGS (1)
  1. EFFEXOR [Suspect]
     Dosage: UNK
     Dates: start: 20040101, end: 20070101

REACTIONS (3)
  - HYPERTENSION [None]
  - BASEDOW'S DISEASE [None]
  - CARDIAC DISORDER [None]
